FAERS Safety Report 23091150 (Version 1)
Quarter: 2023Q4

REPORT INFORMATION
  Report Type: Report from Study
  Country: US (occurrence: US)
  Receive Date: 20231020
  Receipt Date: 20231020
  Transmission Date: 20240110
  Serious: Yes (Death)
  Sender: FDA-Public Use
  Company Number: US-PFIZER INC-PV202300163807

PATIENT
  Age: 72 Year
  Sex: Male

DRUGS (2)
  1. INLYTA [Suspect]
     Active Substance: AXITINIB
     Indication: Renal cancer
     Dosage: 5 MG, 2X/DAY
     Route: 048
     Dates: start: 20230907, end: 202309
  2. KEYTRUDA [Concomitant]
     Active Substance: PEMBROLIZUMAB
     Dosage: UNK

REACTIONS (4)
  - Death [Fatal]
  - Epistaxis [Recovered/Resolved]
  - Dysphonia [Not Recovered/Not Resolved]
  - Liver disorder [Unknown]

NARRATIVE: CASE EVENT DATE: 20230901
